FAERS Safety Report 21381767 (Version 1)
Quarter: 2022Q3

REPORT INFORMATION
  Report Type: Spontaneous
  Country: ES (occurrence: ES)
  Receive Date: 20220927
  Receipt Date: 20220927
  Transmission Date: 20221026
  Serious: Yes (Death, Hospitalization, Other)
  Sender: FDA-Public Use
  Company Number: ES-VELOXIS PHARMACEUTICALS-2022VELES-000345

PATIENT
  Age: 45 Year
  Sex: Female

DRUGS (5)
  1. ENVARSUS XR [Suspect]
     Active Substance: TACROLIMUS
     Indication: Immunosuppression
     Dosage: UNK
     Route: 065
  2. PREDNISONE [Suspect]
     Active Substance: PREDNISONE
     Indication: Immunosuppression
     Dosage: UNK
     Route: 065
  3. EVEROLIMUS [Suspect]
     Active Substance: EVEROLIMUS
     Indication: Immunosuppression
     Dosage: UNK
     Route: 065
  4. THYMOGLOBULIN [Suspect]
     Active Substance: LAPINE T-LYMPHOCYTE IMMUNE GLOBULIN
     Indication: Immunosuppression
     Dosage: UNK
     Route: 065
  5. SULFAMETHOXAZOLE\TRIMETHOPRIM [Concomitant]
     Active Substance: SULFAMETHOXAZOLE\TRIMETHOPRIM
     Indication: Prophylaxis
     Dosage: UNK
     Route: 065

REACTIONS (12)
  - Multiple organ dysfunction syndrome [Fatal]
  - Post procedural urine leak [Unknown]
  - Encephalopathy [Unknown]
  - Hepatic function abnormal [Unknown]
  - Leukopenia [Unknown]
  - Epstein-Barr virus infection [Unknown]
  - Human herpesvirus 6 infection [Unknown]
  - Herpes simplex [Unknown]
  - Systemic candida [Unknown]
  - Candida test positive [Unknown]
  - Urinary tract infection [Unknown]
  - Product use in unapproved indication [Unknown]
